FAERS Safety Report 21390962 (Version 1)
Quarter: 2022Q3

REPORT INFORMATION
  Report Type: Report from Study
  Country: US (occurrence: US)
  Receive Date: 20220929
  Receipt Date: 20220929
  Transmission Date: 20221026
  Serious: Yes (Death, Hospitalization)
  Sender: FDA-Public Use
  Company Number: US-BAYER-2022A133756

PATIENT
  Age: 69 Year
  Sex: Female
  Weight: 48.073 kg

DRUGS (4)
  1. ADEMPAS [Suspect]
     Active Substance: RIOCIGUAT
     Indication: Pulmonary arterial hypertension
     Dosage: UNK
     Dates: start: 20220809
  2. ADEMPAS [Suspect]
     Active Substance: RIOCIGUAT
     Indication: Pulmonary arterial hypertension
     Dosage: 1.5 MG, TID
     Route: 048
  3. OPSUMIT [Concomitant]
     Active Substance: MACITENTAN
  4. ORENITRAM [Concomitant]
     Active Substance: TREPROSTINIL

REACTIONS (2)
  - Hospitalisation [None]
  - Death [Fatal]

NARRATIVE: CASE EVENT DATE: 20220921
